FAERS Safety Report 10576156 (Version 3)
Quarter: 2014Q4

REPORT INFORMATION
  Report Type: Spontaneous
  Country: US (occurrence: US)
  Receive Date: 20141111
  Receipt Date: 20141204
  Transmission Date: 20150529
  Serious: Yes (Hospitalization)
  Sender: FDA-Public Use
  Company Number: US-UNITED THERAPEUTICS-UNT-2014-010462

PATIENT
  Age: 61 Year
  Sex: Male
  Weight: 64.4 kg

DRUGS (4)
  1. ADEMPAS [Concomitant]
     Active Substance: RIOCIGUAT
     Indication: PRODUCT USED FOR UNKNOWN INDICATION
  2. REMODULIN [Suspect]
     Active Substance: TREPROSTINIL
     Indication: PULMONARY ARTERIAL HYPERTENSION
     Dosage: 0.05825 ?G/KG, CONTINUING
     Route: 058
     Dates: start: 20140529
  3. LETAIRIS [Concomitant]
     Active Substance: AMBRISENTAN
     Indication: PRODUCT USED FOR UNKNOWN INDICATION
  4. REMODULIN [Suspect]
     Active Substance: TREPROSTINIL
     Dosage: 0.05825 ?G/KG, CONTINUING
     Route: 058
     Dates: start: 20140606

REACTIONS (4)
  - Hypoxia [Unknown]
  - Therapy cessation [Unknown]
  - Malaise [Unknown]
  - Lung transplant [Unknown]

NARRATIVE: CASE EVENT DATE: 2014
